FAERS Safety Report 7590295-8 (Version None)
Quarter: 2011Q3

REPORT INFORMATION
  Report Type: 
  Country: None (occurrence: None)
  Receive Date: 20110705
  Receipt Date: 20090809
  Transmission Date: 20111222
  Serious: Yes (Other)
  Sender: FDA-Public Use
  Company Number: US-BAYER-200929362NA

PATIENT
  Age: 55 Year
  Sex: Male
  Weight: 102 kg

DRUGS (26)
  1. OXACILLIN [Concomitant]
  2. ETOMIDATE [Concomitant]
     Dosage: 120 MG, UNK
     Route: 042
     Dates: start: 20021115
  3. HEPARIN [Concomitant]
     Dosage: 3000 U, UNK
     Route: 042
     Dates: start: 20021115
  4. COUMADIN [Concomitant]
  5. CEFUROXIME [Concomitant]
     Dosage: 1.5
  6. SUCCINYLCHOLINE CHLORIDE [Concomitant]
     Dosage: 120 MG, UNK
     Dates: start: 20021115
  7. VECURONIUM BROMIDE [Concomitant]
     Dosage: 5 MG, UNK
     Route: 042
     Dates: start: 20021115
  8. EPINEPHRINE [Concomitant]
     Dosage: UNK
     Route: 042
     Dates: start: 20021115
  9. PLATELETS [Concomitant]
     Dosage: 6 U, UNK
     Route: 042
     Dates: start: 20021115
  10. RAMIPRIL [Concomitant]
  11. HEPARIN [Concomitant]
     Dosage: DRIP
     Route: 042
  12. FENTANYL [Concomitant]
     Dosage: 750 ?G, UNK
     Dates: start: 20021115
  13. VECURONIUM BROMIDE [Concomitant]
     Dosage: 10 MG, UNK
     Route: 042
     Dates: start: 20021115
  14. PHENYLEPHRINE HCL [Concomitant]
     Dosage: 80MG/160MG
     Route: 042
     Dates: start: 20021115
  15. PIPERACILLIN [Concomitant]
  16. PANCURONIUM [Concomitant]
     Dosage: 10 MG, UNK
     Dates: start: 20021115
  17. MIDAZOLAM HCL [Concomitant]
     Dosage: 5 MG, UNK
     Route: 042
     Dates: start: 20021115
  18. PROTAMINE SULFATE [Concomitant]
     Dosage: UNK
     Route: 042
     Dates: start: 20021115
  19. TRASYLOL [Suspect]
     Indication: PRODUCT USED FOR UNKNOWN INDICATION
     Dosage: 150 ML, LOADING DOSE
     Route: 042
     Dates: start: 20021115, end: 20021115
  20. RED BLOOD CELLS [Concomitant]
     Dosage: 4 U, UNK
     Route: 042
     Dates: start: 20021115
  21. TRASYLOL [Suspect]
     Indication: AORTIC VALVE REPLACEMENT
  22. VANCOMYCIN [Concomitant]
  23. LASIX [Concomitant]
  24. ZOSYN [Concomitant]
  25. GENTAMICIN [Concomitant]
  26. DOBUTAMINE HCL [Concomitant]
     Dosage: UNK
     Route: 042
     Dates: start: 20021115

REACTIONS (10)
  - ANXIETY [None]
  - RENAL FAILURE [None]
  - RENAL IMPAIRMENT [None]
  - UNEVALUABLE EVENT [None]
  - PAIN [None]
  - INJURY [None]
  - FEAR [None]
  - RENAL INJURY [None]
  - EMOTIONAL DISTRESS [None]
  - STRESS [None]
